FAERS Safety Report 5122653-5 (Version None)
Quarter: 2006Q4

REPORT INFORMATION
  Report Type: 
  Country: None (occurrence: None)
  Receive Date: 20061004
  Receipt Date: 20060923
  Transmission Date: 20070319
  Serious: Yes (Other)
  Sender: FDA-Public Use
  Company Number: 14836

PATIENT
  Age: 5 Year
  Sex: Female

DRUGS (1)
  1. VINCRISTINE [Suspect]
     Indication: ACUTE LYMPHOCYTIC LEUKAEMIA
     Dosage: 3800 MICROGRAM

REACTIONS (3)
  - EYELID PTOSIS [None]
  - OPHTHALMOPLEGIA [None]
  - POLYNEUROPATHY [None]
